FAERS Safety Report 19755113 (Version 2)
Quarter: 2022Q1

REPORT INFORMATION
  Report Type: Report from Study
  Country: CA (occurrence: CA)
  Receive Date: 20210827
  Receipt Date: 20220330
  Transmission Date: 20220423
  Serious: Yes (Other)
  Sender: FDA-Public Use
  Company Number: CA-JNJFOC-20210847563

PATIENT
  Age: 16 Year
  Sex: Female
  Weight: 63 kg

DRUGS (1)
  1. REMICADE [Suspect]
     Active Substance: INFLIXIMAB
     Indication: Colitis ulcerative
     Dosage: PRESCRIPTION RENEWAL ON 24-MAR-2022
     Route: 042
     Dates: start: 20141021

REACTIONS (2)
  - Road traffic accident [Unknown]
  - Wrist fracture [Unknown]

NARRATIVE: CASE EVENT DATE: 20210819
